FAERS Safety Report 9748967 (Version 2)
Quarter: 2014Q1

REPORT INFORMATION
  Report Type: Spontaneous
  Country: US (occurrence: US)
  Receive Date: 20131212
  Receipt Date: 20140213
  Transmission Date: 20141002
  Serious: No
  Sender: FDA-Public Use
  Company Number: US-B.I. PHARMACEUTICALS,INC./RIDGEFIELD-2013-BI-39404BP

PATIENT
  Age: 84 Year
  Sex: Female
  Weight: 59 kg

DRUGS (13)
  1. PRADAXA [Suspect]
     Indication: ATRIAL FIBRILLATION
     Dosage: 300 MG
     Route: 048
     Dates: start: 2009
  2. PRADAXA [Suspect]
     Dosage: 150 MG
     Route: 048
     Dates: start: 2011
  3. ZYRTEC [Concomitant]
     Indication: HYPERSENSITIVITY
     Dosage: UKN
     Route: 048
  4. METOPROLOL TARTRATE [Concomitant]
     Indication: HYPERTENSION
     Dosage: 50 MG
     Route: 048
  5. LOSARTIN [Concomitant]
     Indication: HYPERTENSION
     Dosage: 25 MG
     Route: 048
  6. Q VAR [Concomitant]
     Indication: ASTHMA
     Dosage: 4 PUF
     Route: 055
  7. TIKOSYN [Concomitant]
     Indication: ATRIAL FIBRILLATION
     Route: 048
  8. SINGULAIR [Concomitant]
     Indication: HYPERSENSITIVITY
     Dosage: UKN
     Route: 048
  9. VENTOLIN HFA [Concomitant]
     Indication: ASTHMA
     Dosage: 4 PUF
     Route: 048
  10. VITAMINS [Concomitant]
  11. BUTMETANIDE [Concomitant]
     Indication: LOCAL SWELLING
     Dosage: PRN
     Route: 048
  12. BUTMETANIDE [Concomitant]
     Indication: LOCAL SWELLING
  13. SPIRIVA [Concomitant]
     Indication: ASTHMA
     Dosage: 18 MCG
     Route: 055
     Dates: start: 2012

REACTIONS (3)
  - Pruritus [Not Recovered/Not Resolved]
  - Insomnia [Not Recovered/Not Resolved]
  - Pruritus [Recovered/Resolved]
